FAERS Safety Report 11839585 (Version 1)
Quarter: 2015Q4

REPORT INFORMATION
  Report Type: Spontaneous
  Country: PH (occurrence: PH)
  Receive Date: 20151216
  Receipt Date: 20151216
  Transmission Date: 20160305
  Serious: Yes (Hospitalization)
  Sender: FDA-Public Use
  Company Number: PH-B.I. PHARMACEUTICALS,INC./RIDGEFIELD-2015-BI-69132RP

PATIENT
  Sex: Female

DRUGS (1)
  1. TRAJENTA DUO [Suspect]
     Active Substance: LINAGLIPTIN\METFORMIN HYDROCHLORIDE
     Indication: TYPE 2 DIABETES MELLITUS
     Dosage: DOSE PER APPLICATION: 2.5/500 MG; DAILY DOSE: 5/1000 MG
     Route: 048
     Dates: start: 201508, end: 201509

REACTIONS (3)
  - Gastrooesophageal reflux disease [Unknown]
  - Pancreatitis [Recovered/Resolved]
  - Abdominal pain [Unknown]

NARRATIVE: CASE EVENT DATE: 20151028
